FAERS Safety Report 9073042 (Version 1)
Quarter: 2013Q1

REPORT INFORMATION
  Report Type: Report from Study
  Country: US (occurrence: US)
  Receive Date: 20130129
  Receipt Date: 20130129
  Transmission Date: 20140127
  Serious: No
  Sender: FDA-Public Use
  Company Number: US-ABBOTT-12P-163-0932129-00

PATIENT
  Age: 55 None
  Sex: Female
  Weight: 98.06 kg

DRUGS (5)
  1. HUMIRA 40 MG/0.8 ML PEN [Suspect]
     Indication: RHEUMATOID ARTHRITIS
     Route: 058
     Dates: start: 201109
  2. ARAVA [Concomitant]
     Indication: RHEUMATOID ARTHRITIS
  3. TRAMADOL [Concomitant]
     Indication: RHEUMATOID ARTHRITIS
  4. XANAX [Concomitant]
     Indication: ANXIETY
  5. HCTZ [Concomitant]
     Indication: HYPERTENSION

REACTIONS (7)
  - Sinus disorder [Not Recovered/Not Resolved]
  - Fatigue [Not Recovered/Not Resolved]
  - Heart rate increased [Not Recovered/Not Resolved]
  - Pain [Not Recovered/Not Resolved]
  - Hepatic steatosis [Not Recovered/Not Resolved]
  - Bronchitis [Unknown]
  - Cardiac stress test abnormal [Not Recovered/Not Resolved]
